FAERS Safety Report 16776110 (Version 1)
Quarter: 2019Q3

REPORT INFORMATION
  Report Type: Spontaneous
  Country: US (occurrence: US)
  Receive Date: 20190905
  Receipt Date: 20190905
  Transmission Date: 20191005
  Serious: No
  Sender: FDA-Public Use
  Company Number: US-JNJFOC-20190903075

PATIENT
  Sex: Male

DRUGS (1)
  1. ZYTIGA [Suspect]
     Active Substance: ABIRATERONE ACETATE
     Indication: PRODUCT USED FOR UNKNOWN INDICATION
     Route: 048

REACTIONS (6)
  - Skin discolouration [Unknown]
  - Rhinorrhoea [Unknown]
  - Rash pruritic [Unknown]
  - Incorrect dose administered [Unknown]
  - Lacrimation increased [Unknown]
  - Respiratory tract congestion [Unknown]
